FAERS Safety Report 24768773 (Version 1)
Quarter: 2024Q4

REPORT INFORMATION
  Report Type: Spontaneous
  Country: FR (occurrence: FR)
  Receive Date: 20241224
  Receipt Date: 20241224
  Transmission Date: 20250115
  Serious: Yes (Other)
  Sender: AUROBINDO
  Company Number: FR-AFSSAPS-PP2024001421

PATIENT
  Age: 96 Year
  Sex: Female

DRUGS (1)
  1. PANTOPRAZOLE SODIUM [Suspect]
     Active Substance: PANTOPRAZOLE SODIUM
     Indication: Duodenal ulcer
     Dosage: 40 MILLIGRAM, ONCE A DAY, 40 MG/D
     Route: 042
     Dates: start: 20241026, end: 20241107

REACTIONS (2)
  - Rash maculo-papular [Recovering/Resolving]
  - Eosinophil count [Recovering/Resolving]

NARRATIVE: CASE EVENT DATE: 20241029
